FAERS Safety Report 9455769 (Version 2)
Quarter: 2015Q2

REPORT INFORMATION
  Report Type: Report from Study
  Country: US (occurrence: US)
  Receive Date: 20130813
  Receipt Date: 20150408
  Transmission Date: 20150821
  Serious: Yes (Death, Other)
  Sender: FDA-Public Use
  Company Number: US-SANOFI-AVENTIS-2013SA080492

PATIENT
  Age: 52 Year
  Sex: Female

DRUGS (1)
  1. AUBAGIO [Suspect]
     Active Substance: TERIFLUNOMIDE
     Route: 048
     Dates: start: 20130425

REACTIONS (3)
  - Death [Fatal]
  - Ankle fracture [Unknown]
  - Fall [Unknown]
